FAERS Safety Report 5079239-0 (Version None)
Quarter: 2006Q3

REPORT INFORMATION
  Report Type: 
  Country: None (occurrence: None)
  Receive Date: 20060720
  Receipt Date: 20050708
  Transmission Date: 20061208
  Serious: Yes (Hospitalization)
  Sender: FDA-Public Use
  Company Number: 2005087292

PATIENT
  Age: 56 Year
  Sex: Female
  Weight: 170.0989 kg

DRUGS (13)
  1. CELEBREX [Suspect]
     Indication: ARTHRITIS
     Dosage: 200 MG (200 MG, 1 IN 1 D), ORAL
     Route: 048
     Dates: start: 20020101
  2. BEXTRA [Suspect]
     Indication: ARTHRITIS
     Dosage: 10 MEQ (10 MG, AS NECESSARY), ORAL
     Route: 048
  3. FELDENE [Suspect]
     Indication: ARTHRITIS
  4. XEROFORM (BISMUTH TRIBROMOPHENATE) [Suspect]
     Indication: SKIN ULCER
     Dosage: TOPICAL
     Route: 061
     Dates: start: 20040101
  5. VIOXX [Suspect]
     Indication: ILL-DEFINED DISORDER
  6. MOBIC [Suspect]
     Indication: ILL-DEFINED DISORDER
  7. PRILOSEC [Concomitant]
  8. LASIX [Concomitant]
  9. OXYBUTYNIN [Concomitant]
  10. KLOR-CON [Concomitant]
  11. ABSORBINE JR (MENTHOL) [Concomitant]
  12. IBUPROFEN [Concomitant]
  13. DIPHENHYDRAMINE HCL [Concomitant]

REACTIONS (11)
  - BODY HEIGHT DECREASED [None]
  - CONDITION AGGRAVATED [None]
  - DIARRHOEA [None]
  - DRUG INEFFECTIVE [None]
  - HYPERSENSITIVITY [None]
  - NAUSEA [None]
  - PAIN [None]
  - SKIN ULCER [None]
  - SLEEP APNOEA SYNDROME [None]
  - STRESS [None]
  - VOMITING [None]
